FAERS Safety Report 6636221-7 (Version None)
Quarter: 2010Q1

REPORT INFORMATION
  Report Type: 
  Country: None (occurrence: None)
  Receive Date: 20100316
  Receipt Date: 20100304
  Transmission Date: 20100710
  Serious: Yes (Other)
  Sender: FDA-Public Use
  Company Number: CN-PFIZER INC-2010023579

PATIENT
  Age: 36 Year
  Sex: Male

DRUGS (6)
  1. VFEND [Suspect]
     Indication: FUNGAL INFECTION
     Dosage: 600 MG, 2X/DAY
     Route: 042
     Dates: start: 20100130, end: 20100130
  2. VFEND [Suspect]
     Dosage: 400 MG, 2X/DAY
     Route: 042
     Dates: start: 20100131, end: 20100204
  3. VFEND [Suspect]
     Dosage: 200 MG, 2X/DAY
     Route: 048
     Dates: start: 20100205, end: 20100222
  4. ZYVOX [Suspect]
     Indication: STAPHYLOCOCCAL INFECTION
     Dosage: 600 MG, 2X/DAY
     Route: 042
     Dates: start: 20100205, end: 20100226
  5. TAZOCIN [Concomitant]
  6. CHEMITRIM [Concomitant]

REACTIONS (3)
  - BLINDNESS [None]
  - RETINAL HAEMORRHAGE [None]
  - STAPHYLOCOCCAL INFECTION [None]
